FAERS Safety Report 7384142-7 (Version None)
Quarter: 2011Q1

REPORT INFORMATION
  Report Type: 
  Country: None (occurrence: None)
  Receive Date: 20110330
  Receipt Date: 20110324
  Transmission Date: 20110831
  Serious: Yes (Other)
  Sender: FDA-Public Use
  Company Number: A0920548A

PATIENT
  Age: 45 Year
  Sex: Female

DRUGS (1)
  1. NARAMIG [Suspect]
     Indication: MIGRAINE
     Route: 065

REACTIONS (1)
  - CONVULSION [None]
